FAERS Safety Report 7221959-3 (Version None)
Quarter: 2011Q1

REPORT INFORMATION
  Report Type: 
  Country: None (occurrence: None)
  Receive Date: 20110112
  Receipt Date: 20110104
  Transmission Date: 20110831
  Serious: Yes (Other)
  Sender: FDA-Public Use
  Company Number: B0692925A

PATIENT
  Age: 3 Year
  Sex: Male

DRUGS (2)
  1. PANADOL [Concomitant]
     Route: 065
  2. AMOXIL [Suspect]
     Indication: EAR INFECTION
     Dosage: 4ML THREE TIMES PER DAY
     Route: 065
     Dates: start: 20110103

REACTIONS (4)
  - RASH MACULAR [None]
  - HEADACHE [None]
  - FEELING HOT [None]
  - FEBRILE CONVULSION [None]
